FAERS Safety Report 17907260 (Version 6)
Quarter: 2020Q3

REPORT INFORMATION
  Report Type: Report from Study
  Country: IE (occurrence: IE)
  Receive Date: 20200617
  Receipt Date: 20200812
  Transmission Date: 20201103
  Serious: Yes (Hospitalization)
  Sender: FDA-Public Use
  Company Number: IE-ROCHE-2622127

PATIENT
  Age: 56 Year
  Sex: Female
  Weight: 96 kg

DRUGS (8)
  1. DOXORUBICIN [Suspect]
     Active Substance: DOXORUBICIN
     Indication: TRIPLE NEGATIVE BREAST CANCER
     Dosage: DOSE OF LAST DOXORUBICIN ADMINISTERED PRIOR TO AE/SAE ONSET: 118 MG?DATE OF MOST RECENT DOSE OF DOXO
     Route: 042
     Dates: start: 20200214
  2. PEGFILGRASTIM [Suspect]
     Active Substance: PEGFILGRASTIM
     Dosage: CYCLE 5 VISIT 2
     Route: 058
     Dates: start: 20200328, end: 20200328
  3. PEGFILGRASTIM [Suspect]
     Active Substance: PEGFILGRASTIM
     Dosage: CYCLE 4 VISIT 2
     Route: 058
     Dates: start: 20200229, end: 20200229
  4. ATEZOLIZUMAB. [Suspect]
     Active Substance: ATEZOLIZUMAB
     Indication: TRIPLE NEGATIVE BREAST CANCER
     Dosage: DATE OF MOST RECENT DOSE OF ATEZOLIZUMAB PRIOR TO AE/SAE ONSET: 22/MAY/2020
     Route: 042
     Dates: start: 20191025
  5. PACLITAXEL. [Suspect]
     Active Substance: PACLITAXEL
     Indication: TRIPLE NEGATIVE BREAST CANCER
     Dosage: DOSE OF LAST PACLITAXEL ADMINISTERED PRIOR TO AE/SAE ONSET: 127MG?DATE OF MOST RECENT DOSE OF PACLIT
     Route: 042
     Dates: start: 20191025
  6. CYCLOPHOSPHAMIDE. [Suspect]
     Active Substance: CYCLOPHOSPHAMIDE
     Indication: TRIPLE NEGATIVE BREAST CANCER
     Dosage: DOSE OF LAST CYCLOPHOSPHAMIDE ADMINISTERED PRIOR TO AE/SAE ONSET: 1182 MG?DATE OF MOST RECENT DOSE O
     Route: 042
     Dates: start: 20200214
  7. PEGFILGRASTIM [Suspect]
     Active Substance: PEGFILGRASTIM
     Dosage: CYCLE 5 VISIT 1
     Route: 058
     Dates: start: 20200314, end: 20200314
  8. PEGFILGRASTIM [Suspect]
     Active Substance: PEGFILGRASTIM
     Indication: TRIPLE NEGATIVE BREAST CANCER
     Dosage: CYCLE 4 VISIT 1
     Route: 058
     Dates: start: 20200215, end: 20200215

REACTIONS (1)
  - Cellulitis [Recovered/Resolved]

NARRATIVE: CASE EVENT DATE: 20200527
